FAERS Safety Report 4927507-2 (Version None)
Quarter: 2006Q1

REPORT INFORMATION
  Report Type: 
  Country: None (occurrence: None)
  Receive Date: 20060228
  Receipt Date: 20050802
  Transmission Date: 20060701
  Serious: Yes (Hospitalization)
  Sender: FDA-Public Use
  Company Number: US-MERCK-0508USA00894

PATIENT
  Age: 44 Year
  Sex: Male
  Weight: 67 kg

DRUGS (4)
  1. VIOXX [Suspect]
     Indication: PAIN IN EXTREMITY
     Route: 048
  2. VIOXX [Suspect]
     Route: 048
     Dates: start: 20040126, end: 20040601
  3. VIOXX [Suspect]
     Indication: PAIN
     Route: 048
  4. VIOXX [Suspect]
     Route: 048
     Dates: start: 20040126, end: 20040601

REACTIONS (12)
  - ANXIETY [None]
  - ARTERIOSCLEROSIS [None]
  - ASTHENIA [None]
  - CARDIAC SEPTAL DEFECT [None]
  - CEREBROVASCULAR ACCIDENT [None]
  - CORONARY ARTERY DISEASE [None]
  - HYPOAESTHESIA [None]
  - LIMB DISCOMFORT [None]
  - MYOCARDIAL INFARCTION [None]
  - SYNCOPE [None]
  - THROMBOSIS [None]
  - TRANSIENT ISCHAEMIC ATTACK [None]
